FAERS Safety Report 6817763-8 (Version None)
Quarter: 2010Q3

REPORT INFORMATION
  Report Type: 
  Country: None (occurrence: None)
  Receive Date: 20100706
  Receipt Date: 20100621
  Transmission Date: 20110219
  Serious: No
  Sender: FDA-Public Use
  Company Number: US-B.I. PHARMACEUTICALS,INC./RIDGEFIELD-2010-BP-07001BP

PATIENT
  Sex: Male
  Weight: 102.06 kg

DRUGS (19)
  1. CATAPRES [Suspect]
     Indication: BLOOD PRESSURE MANAGEMENT
     Route: 048
     Dates: start: 20090101
  2. PRIMIDONE [Suspect]
     Indication: TREMOR
     Dosage: 25 MG
     Route: 048
     Dates: start: 20081218
  3. ALDOMET [Suspect]
     Indication: BLOOD PRESSURE MANAGEMENT
     Dosage: 750 MG
     Route: 048
     Dates: end: 20090118
  4. DILTIAZEM [Concomitant]
  5. LISINOPRIL [Concomitant]
  6. VYTORIN [Concomitant]
  7. CORTICOSTEROID [Concomitant]
  8. LOPRESSOR [Concomitant]
  9. GLUCOPHAGE XR [Concomitant]
  10. FLOMAX [Concomitant]
  11. CLOTRIMAZOLE [Concomitant]
  12. ASPIRIN [Concomitant]
  13. LASIX [Concomitant]
  14. GLYBURIDE [Concomitant]
  15. NITROGLYCERIN [Concomitant]
  16. TOBRAMYCIN [Concomitant]
  17. KENALOG [Concomitant]
     Dates: start: 20081218, end: 20081218
  18. FOLIC ACID [Concomitant]
  19. BLACKMORES CO-Q10 [Concomitant]

REACTIONS (8)
  - ASTHENIA [None]
  - BLOOD PRESSURE INCREASED [None]
  - CONDITION AGGRAVATED [None]
  - DIZZINESS [None]
  - EYE DISORDER [None]
  - FEELING ABNORMAL [None]
  - FLUSHING [None]
  - NERVOUSNESS [None]
